FAERS Safety Report 18491641 (Version 1)
Quarter: 2020Q4

REPORT INFORMATION
  Report Type: Spontaneous
  Country: US (occurrence: US)
  Receive Date: 20201111
  Receipt Date: 20201111
  Transmission Date: 20210114
  Serious: No
  Sender: FDA-Public Use
  Company Number: US-BAYER-2020-238586

PATIENT
  Age: 28 Year
  Sex: Female

DRUGS (1)
  1. MIRENA [Suspect]
     Active Substance: LEVONORGESTREL
     Indication: CONTRACEPTION
     Dosage: 20 ?G PER DAY,  CONTINUOUSLY
     Route: 015
     Dates: start: 20200831, end: 20201020

REACTIONS (2)
  - Device expulsion [Recovered/Resolved]
  - Device use issue [None]

NARRATIVE: CASE EVENT DATE: 20201020
